FAERS Safety Report 12085977 (Version 1)
Quarter: 2016Q1

REPORT INFORMATION
  Report Type: Spontaneous
  Country: US (occurrence: US)
  Receive Date: 20160217
  Receipt Date: 20160217
  Transmission Date: 20160526
  Serious: Yes (Hospitalization)
  Sender: FDA-Public Use
  Company Number: PHHY2016US018775

PATIENT
  Age: 62 Year
  Sex: Female

DRUGS (1)
  1. DOXORUBICIN [Suspect]
     Active Substance: DOXORUBICIN
     Indication: BREAST CANCER METASTATIC
     Dosage: 20 MG/M2, QD
     Route: 041

REACTIONS (2)
  - Transaminases increased [Recovered/Resolved]
  - Febrile neutropenia [Recovered/Resolved]
